FAERS Safety Report 10152733 (Version 2)
Quarter: 2014Q2

REPORT INFORMATION
  Report Type: Spontaneous
  Country: US (occurrence: US)
  Receive Date: 20140505
  Receipt Date: 20140505
  Transmission Date: 20141212
  Serious: Yes (Hospitalization, Disabling, Other)
  Sender: FDA-Public Use
  Company Number: US-009507513-0810USA04095

PATIENT
  Sex: Female
  Weight: 90.72 kg

DRUGS (2)
  1. FOSAMAX [Suspect]
     Indication: OSTEOPOROSIS
     Dosage: 70 MG, QD
     Route: 048
     Dates: start: 1998
  2. FOSAMAX [Suspect]
     Indication: OSTEOARTHRITIS
     Dosage: 70 MG, QW
     Route: 048
     Dates: end: 200810

REACTIONS (73)
  - Knee arthroplasty [Unknown]
  - Knee arthroplasty [Unknown]
  - Systemic lupus erythematosus [Not Recovered/Not Resolved]
  - Brain neoplasm [Unknown]
  - Hospitalisation [Unknown]
  - Deafness neurosensory [Unknown]
  - Osteonecrosis [Unknown]
  - Jaw disorder [Unknown]
  - Surgery [Unknown]
  - Renal failure acute [Unknown]
  - Bone graft [Unknown]
  - Osteomyelitis [Not Recovered/Not Resolved]
  - Osteonecrosis of jaw [Unknown]
  - Overdose [Unknown]
  - Hiatus hernia [Unknown]
  - Cardiac murmur [Unknown]
  - Dental caries [Unknown]
  - Depression [Unknown]
  - Type 2 diabetes mellitus [Unknown]
  - Blood cholesterol increased [Unknown]
  - Rheumatoid arthritis [Unknown]
  - Oral disorder [Unknown]
  - Bronchitis chronic [Unknown]
  - Carpal tunnel syndrome [Unknown]
  - Fibromyalgia [Unknown]
  - Exostosis of jaw [Unknown]
  - Tooth disorder [Unknown]
  - Toothache [Unknown]
  - Dry mouth [Unknown]
  - Dental caries [Unknown]
  - Nasal discomfort [Unknown]
  - Fall [Unknown]
  - Fracture [Unknown]
  - Road traffic accident [Unknown]
  - Hyperlipidaemia [Unknown]
  - Fall [Unknown]
  - Spinal compression fracture [Unknown]
  - Gout [Unknown]
  - Fall [Unknown]
  - Vestibular disorder [Unknown]
  - Dental caries [Unknown]
  - Dental caries [Unknown]
  - Hypoxia [Unknown]
  - Balance disorder [Unknown]
  - Cataract [Unknown]
  - Exostosis of jaw [Unknown]
  - Exostosis of jaw [Unknown]
  - Tooth disorder [Unknown]
  - Meningioma [Unknown]
  - Osteopenia [Unknown]
  - Tooth fracture [Unknown]
  - Periodontitis [Unknown]
  - Macular degeneration [Unknown]
  - Oral fibroma [Unknown]
  - Gingivitis [Unknown]
  - Tooth fracture [Unknown]
  - Periostitis [Unknown]
  - Tooth fracture [Unknown]
  - Dry eye [Unknown]
  - Dental caries [Unknown]
  - Tooth fracture [Unknown]
  - Sensitivity of teeth [Unknown]
  - Wound [Unknown]
  - Tooth extraction [Unknown]
  - Debridement [Unknown]
  - Tooth extraction [Unknown]
  - Hypoxia [Unknown]
  - Oedema [Unknown]
  - Pain in jaw [Unknown]
  - Drug hypersensitivity [Unknown]
  - Diarrhoea [Recovering/Resolving]
  - Arthralgia [Unknown]
  - Dysphagia [Unknown]
